FAERS Safety Report 10703623 (Version 1)
Quarter: 2015Q1

REPORT INFORMATION
  Report Type: Spontaneous
  Country: DE (occurrence: None)
  Receive Date: 20150108
  Receipt Date: 20150108
  Transmission Date: 20150721
  Serious: Yes (Hospitalization)
  Sender: FDA-Public Use
  Company Number: DE2014GSK043125

PATIENT
  Age: 48 Year
  Sex: Female

DRUGS (5)
  1. PAROXATIN (PAROXETINE HYDROCHLORIDE) [Suspect]
     Active Substance: PAROXETINE HYDROCHLORIDE
     Indication: PRODUCT USED FOR UNKNOWN INDICATION
  2. HORMONE TREATMENT (HORMONE REPLACEMENT THERAPY (NOS)? [Concomitant]
  3. ATOSIL (PROMETHAZINE HYDROCHLORIDE) [Concomitant]
  4. ZYPREXA [Suspect]
     Active Substance: OLANZAPINE
     Indication: PRODUCT USED FOR UNKNOWN INDICATION
  5. BELOC-ZOK (METOPROLOL SUCCINATE) [Concomitant]

REACTIONS (4)
  - Lung infiltration [None]
  - Liver disorder [None]
  - Acute hepatic failure [None]
  - Pleural effusion [None]

NARRATIVE: CASE EVENT DATE: 201110
